FAERS Safety Report 5390487-2 (Version None)
Quarter: 2007Q3

REPORT INFORMATION
  Report Type: 
  Country: None (occurrence: None)
  Receive Date: 20070718
  Receipt Date: 20060707
  Transmission Date: 20080115
  Serious: No
  Sender: FDA-Public Use
  Company Number: US-KINGPHARMUSA00001-K200600897

PATIENT

DRUGS (5)
  1. LEVOXYL [Suspect]
     Indication: HYPOTHYROIDISM
     Dosage: 75 MCG, QD
     Route: 048
     Dates: start: 20051001, end: 20060601
  2. LEVOXYL [Suspect]
     Dosage: 75 MCG, QD, 50 MCG QD Q 12TH DAY
     Route: 048
     Dates: start: 20060601, end: 20060628
  3. LEVOXYL [Suspect]
     Dosage: 75 MCG, QD
     Route: 048
     Dates: start: 20060628
  4. METOPROLOL TARTRATE [Concomitant]
     Indication: HEART RATE INCREASED
     Route: 048
  5. XANAX [Concomitant]
     Indication: ANXIETY
     Dosage: UNK, BID
     Route: 048

REACTIONS (2)
  - ALOPECIA [None]
  - PSYCHOMOTOR HYPERACTIVITY [None]
